FAERS Safety Report 4932757-5 (Version None)
Quarter: 2006Q1

REPORT INFORMATION
  Report Type: 
  Country: None (occurrence: None)
  Receive Date: 20060302
  Receipt Date: 20060302
  Transmission Date: 20060701
  Serious: Yes (Other)
  Sender: FDA-Public Use
  Company Number: None

PATIENT
  Age: 55 Year
  Sex: Female

DRUGS (2)
  1. OXYCONTIN [Suspect]
     Indication: FIBROMYALGIA
     Dosage: 10 MG BFD
  2. OXYCONTIN [Suspect]
     Indication: OSTEOARTHRITIS
     Dosage: 10 MG BFD

REACTIONS (3)
  - INADEQUATE ANALGESIA [None]
  - PHARMACEUTICAL PRODUCT COMPLAINT [None]
  - THERAPEUTIC RESPONSE UNEXPECTED WITH DRUG SUBSTITUTION [None]
